FAERS Safety Report 15897646 (Version 2)
Quarter: 2019Q1

REPORT INFORMATION
  Report Type: Spontaneous
  Country: CZ (occurrence: CZ)
  Receive Date: 20190131
  Receipt Date: 20190131
  Transmission Date: 20190417
  Serious: Yes (Other)
  Sender: FDA-Public Use
  Company Number: PHHY2019CZ022014

PATIENT
  Age: 32 Year
  Sex: Female

DRUGS (3)
  1. TOBREX [Suspect]
     Active Substance: TOBRAMYCIN
     Indication: EYE INFLAMMATION
     Dosage: 2 GTT, (4 - 5 X DAILY IN EACH EYE)
     Route: 047
     Dates: start: 20190108
  2. EUTHYROX [Concomitant]
     Active Substance: LEVOTHYROXINE SODIUM
     Indication: PRODUCT USED FOR UNKNOWN INDICATION
     Route: 048
  3. XORIMAX [Concomitant]
     Active Substance: CEFUROXIME AXETIL
     Indication: PRODUCT USED FOR UNKNOWN INDICATION
     Route: 048

REACTIONS (11)
  - Abnormal sensation in eye [Recovering/Resolving]
  - Pruritus [Recovering/Resolving]
  - Eyelid oedema [Recovering/Resolving]
  - Conjunctival hyperaemia [Recovering/Resolving]
  - Eye pain [Recovering/Resolving]
  - Skin burning sensation [Recovering/Resolving]
  - Lacrimation increased [Recovering/Resolving]
  - Skin exfoliation [Recovering/Resolving]
  - Flushing [Recovering/Resolving]
  - Eye irritation [Recovering/Resolving]
  - Hypersensitivity [Recovering/Resolving]

NARRATIVE: CASE EVENT DATE: 20190111
